FAERS Safety Report 8218138-X (Version None)
Quarter: 2012Q1

REPORT INFORMATION
  Report Type: 
  Country: None (occurrence: None)
  Receive Date: 20120316
  Receipt Date: 20120316
  Transmission Date: 20120608
  Serious: Yes (Hospitalization)
  Sender: FDA-Public Use
  Company Number: None

PATIENT
  Age: 51 Year
  Sex: Male
  Weight: 108 kg

DRUGS (1)
  1. AMIODARONE HCL [Suspect]
     Indication: ATRIAL FIBRILLATION
     Dosage: 150MG X IVPB OVER 10 MIN
     Route: 042

REACTIONS (2)
  - LOSS OF CONSCIOUSNESS [None]
  - VENTRICULAR EXTRASYSTOLES [None]
